FAERS Safety Report 23358828 (Version 1)
Quarter: 2024Q1

REPORT INFORMATION
  Report Type: Spontaneous
  Country: AU (occurrence: AU)
  Receive Date: 20240102
  Receipt Date: 20240102
  Transmission Date: 20240410
  Serious: Yes (Other)
  Sender: FDA-Public Use
  Company Number: AU-PFIZER INC-PV202300206567

PATIENT
  Age: 53 Year
  Sex: Male

DRUGS (22)
  1. METHOTREXATE SODIUM [Suspect]
     Active Substance: METHOTREXATE SODIUM
     Indication: Psoriatic arthropathy
     Dosage: 25 MG, QW (FRIDAY)
     Route: 065
     Dates: start: 201809
  2. METHOTREXATE SODIUM [Suspect]
     Active Substance: METHOTREXATE SODIUM
     Dosage: 20 MG
     Route: 048
  3. METHOTREXATE SODIUM [Suspect]
     Active Substance: METHOTREXATE SODIUM
     Dosage: 10 MG, ONCE/SINGLE
     Route: 048
  4. METHOTREXATE SODIUM [Suspect]
     Active Substance: METHOTREXATE SODIUM
     Dosage: 20 MG, OVER 3 WEEKS
     Route: 048
  5. METHOTREXATE SODIUM [Suspect]
     Active Substance: METHOTREXATE SODIUM
     Indication: Psoriatic arthropathy
     Dosage: 20 MG
     Route: 058
  6. PIROXICAM [Suspect]
     Active Substance: PIROXICAM
     Dosage: UNK
     Route: 065
  7. COSENTYX [Suspect]
     Active Substance: SECUKINUMAB
     Indication: Psoriatic arthropathy
     Dosage: 150 MG, WEEKLY X5, THEN Q4/52
     Route: 065
  8. COSENTYX [Suspect]
     Active Substance: SECUKINUMAB
     Dosage: 300 MG
  9. DIPROSONE [Suspect]
     Active Substance: BETAMETHASONE DIPROPIONATE
     Dosage: 0.05 PERCENT, BID (PRN)
     Route: 065
  10. OXYCODONE HYDROCHLORIDE [Suspect]
     Active Substance: OXYCODONE HYDROCHLORIDE
     Dosage: 5 MG, QD (PRN)
     Route: 065
  11. FISH OIL [Suspect]
     Active Substance: FISH OIL
     Dosage: 8 G, QD
     Route: 065
  12. NEXIUM I.V. [Suspect]
     Active Substance: ESOMEPRAZOLE SODIUM
     Dosage: 20 MG, BID
     Route: 065
  13. TESTOSTERONE [Suspect]
     Active Substance: TESTOSTERONE
     Dosage: UNK
     Route: 065
  14. ATROPINE [Suspect]
     Active Substance: ATROPINE\ATROPINE SULFATE
     Dosage: UNK
     Route: 065
  15. BUPRENORPHINE [Suspect]
     Active Substance: BUPRENORPHINE
     Dosage: 15 UG, QW
     Route: 065
  16. FLECAINIDE ACETATE [Suspect]
     Active Substance: FLECAINIDE ACETATE
     Dosage: 100 MG, BID
     Route: 065
  17. FOLIC ACID [Suspect]
     Active Substance: FOLIC ACID
     Dosage: 500 UG, QD (EXCEPT FRIDAY)
     Route: 065
  18. IBUPROFEN [Suspect]
     Active Substance: IBUPROFEN
     Dosage: UNK
     Route: 065
  19. ONDANSETRON [Suspect]
     Active Substance: ONDANSETRON
     Dosage: 4 MG (TWO DAYS AFTER METHOTREXATE)
     Route: 065
  20. OXYCODONE [Suspect]
     Active Substance: OXYCODONE
     Dosage: UNK
     Route: 065
  21. ACETAMINOPHEN [Suspect]
     Active Substance: ACETAMINOPHEN
     Dosage: UNK
     Route: 065
  22. COSENTYX [Concomitant]
     Active Substance: SECUKINUMAB
     Dosage: PRE FILLED SYRINGE (DEVICE)

REACTIONS (14)
  - Pancreatitis [Unknown]
  - Haematochezia [Unknown]
  - Renal impairment [Unknown]
  - Condition aggravated [Unknown]
  - Arthralgia [Recovering/Resolving]
  - Inflammatory pain [Unknown]
  - Gastrointestinal disorder [Unknown]
  - Nausea [Recovered/Resolved]
  - Osteopenia [Unknown]
  - Palmoplantar pustulosis [Recovering/Resolving]
  - Plantar fasciitis [Unknown]
  - Psoriasis [Unknown]
  - Secondary hypogonadism [Unknown]
  - Off label use [Unknown]
